FAERS Safety Report 15679710 (Version 1)
Quarter: 2018Q4

REPORT INFORMATION
  Report Type: Spontaneous
  Country: IT (occurrence: IT)
  Receive Date: 20181203
  Receipt Date: 20181203
  Transmission Date: 20190205
  Serious: Yes (Other)
  Sender: FDA-Public Use
  Company Number: IT-HTU-2008IT004103

PATIENT
  Age: 66 Year
  Sex: Male

DRUGS (4)
  1. OXYCONTIN [Concomitant]
     Active Substance: OXYCODONE HYDROCHLORIDE
     Indication: PAIN
     Dosage: 10 MG, UNK
     Route: 048
  2. ALOXI [Suspect]
     Active Substance: PALONOSETRON HYDROCHLORIDE
     Indication: PROPHYLAXIS OF NAUSEA AND VOMITING
     Dosage: .25 MG, SINGLE
     Route: 042
     Dates: start: 20080404, end: 20080404
  3. GEMZAR [Suspect]
     Active Substance: GEMCITABINE HYDROCHLORIDE
     Indication: BLADDER ADENOCARCINOMA STAGE UNSPECIFIED
     Dosage: 1600 MG, SINGLE
     Route: 042
     Dates: start: 20080404, end: 20080404
  4. CISPLATIN EBEWE [Suspect]
     Active Substance: CISPLATIN
     Indication: BLADDER ADENOCARCINOMA STAGE UNSPECIFIED
     Dosage: 100 MG, SINGLE
     Route: 042
     Dates: start: 20080404, end: 20080404

REACTIONS (1)
  - Erythema multiforme [Recovered/Resolved]

NARRATIVE: CASE EVENT DATE: 20080409
